APPROVED DRUG PRODUCT: DOXYCYCLINE HYCLATE
Active Ingredient: DOXYCYCLINE HYCLATE
Strength: EQ 100MG BASE
Dosage Form/Route: CAPSULE;ORAL
Application: A207289 | Product #001 | TE Code: AB
Applicant: AMNEAL PHARMACEUTICALS HOLDINGS GMBH
Approved: Jun 27, 2016 | RLD: No | RS: No | Type: RX